FAERS Safety Report 12931046 (Version 1)
Quarter: 2016Q4

REPORT INFORMATION
  Report Type: Spontaneous
  Country: US (occurrence: US)
  Receive Date: 20161110
  Receipt Date: 20161110
  Transmission Date: 20170207
  Serious: No
  Sender: FDA-Public Use
  Company Number: US-JAZZ-2016-US-017674

PATIENT
  Age: 50 Year
  Sex: Female
  Weight: 64.39 kg

DRUGS (12)
  1. BIOTIN [Concomitant]
     Active Substance: BIOTIN
  2. ASPIRIN (E.C.) [Concomitant]
     Active Substance: ASPIRIN
  3. MELOXICAM. [Concomitant]
     Active Substance: MELOXICAM
  4. ALEVE [Concomitant]
     Active Substance: NAPROXEN SODIUM
  5. PROBIOTIC [Concomitant]
     Active Substance: PROBIOTICS NOS
  6. VITAMIN B COMPLEX [Concomitant]
     Active Substance: CYANOCOBALAMIN\DEXPANTHENOL\NIACINAMIDE\PYRIDOXINE HYDROCHLORIDE\RIBOFLAVIN 5^-PHOSPHATE SODIUM\THIAMINE HYDROCHLORIDE\VITAMIN B COMPLEX
  7. VITAMIN B12 [Concomitant]
     Active Substance: CYANOCOBALAMIN
  8. DIAZEPAM. [Concomitant]
     Active Substance: DIAZEPAM
  9. LEXAPRO [Concomitant]
     Active Substance: ESCITALOPRAM OXALATE
  10. FLAXSEED [Concomitant]
     Active Substance: FLAX SEED
  11. XYREM [Suspect]
     Active Substance: SODIUM OXYBATE
     Indication: CATAPLEXY
     Dosage: 2.25 G, BID
     Route: 048
     Dates: start: 20160908
  12. MULTIVITAMINS [Concomitant]
     Active Substance: VITAMINS

REACTIONS (1)
  - Asthenia [Unknown]

NARRATIVE: CASE EVENT DATE: 20160909
